FAERS Safety Report 7560564-6 (Version None)
Quarter: 2011Q2

REPORT INFORMATION
  Report Type: 
  Country: None (occurrence: None)
  Receive Date: 20110621
  Receipt Date: 20101109
  Transmission Date: 20111010
  Serious: No
  Sender: FDA-Public Use
  Company Number: US-ASTRAZENECA-2010SE45065

PATIENT
  Age: 25 Year
  Sex: Male
  Weight: 79.4 kg

DRUGS (3)
  1. ENTOCORT EC [Suspect]
     Route: 048
     Dates: end: 20100801
  2. ALOE VERA SUPPLEMENT [Concomitant]
     Indication: ABDOMINAL PAIN UPPER
  3. ENTOCORT EC [Suspect]
     Indication: CROHN'S DISEASE
     Route: 048
     Dates: start: 20100501

REACTIONS (3)
  - EYE PAIN [None]
  - INTRAOCULAR PRESSURE TEST [None]
  - SWELLING [None]
